FAERS Safety Report 8218614-X (Version None)
Quarter: 2012Q1

REPORT INFORMATION
  Report Type: 
  Country: None (occurrence: None)
  Receive Date: 20120306
  Receipt Date: 20110506
  Transmission Date: 20120608
  Serious: Yes (Hospitalization)
  Sender: FDA-Public Use
  Company Number: DIB2011003

PATIENT
  Age: 11 Year
  Sex: Male
  Weight: 30 kg

DRUGS (6)
  1. ENALAPRIL [Concomitant]
  2. FUROSEMIDE [Concomitant]
  3. PROPRANOLOL [Concomitant]
  4. DIBENZYLINE [Suspect]
     Indication: PHAEOCHROMOCYTOMA
     Dosage: 10 MG PO TID
     Route: 048
  5. COUMADIN [Concomitant]
  6. IV MORPHINE [Concomitant]

REACTIONS (2)
  - TACHYCARDIA [None]
  - HYPOTENSION [None]
